FAERS Safety Report 14012306 (Version 1)
Quarter: 2017Q3

REPORT INFORMATION
  Report Type: Spontaneous
  Country: US (occurrence: US)
  Receive Date: 20170926
  Receipt Date: 20170926
  Transmission Date: 20171128
  Serious: No
  Sender: FDA-Public Use
  Company Number: US-ASTRAZENECA-2017SE94221

PATIENT
  Age: 918 Month
  Sex: Male
  Weight: 101.6 kg

DRUGS (1)
  1. SYMBICORT [Suspect]
     Active Substance: BUDESONIDE\FORMOTEROL FUMARATE DIHYDRATE
     Indication: EMPHYSEMA
     Dosage: 160-4.5MCG, TWO PUFFS, TWO TIMES A DAY
     Route: 055

REACTIONS (5)
  - Circumstance or information capable of leading to medication error [Not Recovered/Not Resolved]
  - Device malfunction [Unknown]
  - Frustration tolerance decreased [Not Recovered/Not Resolved]
  - Off label use [Unknown]
  - Intentional product misuse [Not Recovered/Not Resolved]

NARRATIVE: CASE EVENT DATE: 201708
